FAERS Safety Report 13426828 (Version 5)
Quarter: 2017Q3

REPORT INFORMATION
  Report Type: Spontaneous
  Country: US (occurrence: US)
  Receive Date: 20170411
  Receipt Date: 20170912
  Transmission Date: 20171127
  Serious: Yes (Other)
  Sender: FDA-Public Use
  Company Number: US-PFIZER INC-2017155464

PATIENT
  Age: 83 Year
  Sex: Female
  Weight: 44 kg

DRUGS (3)
  1. XELJANZ [Suspect]
     Active Substance: TOFACITINIB CITRATE
     Dosage: 5 MG, 2X/DAY
     Route: 048
     Dates: start: 201703, end: 201703
  2. XELJANZ [Suspect]
     Active Substance: TOFACITINIB CITRATE
     Indication: RHEUMATOID ARTHRITIS
     Dosage: 5 MG, 2X/DAY
     Route: 048
     Dates: start: 20161122, end: 201701
  3. XELJANZ [Suspect]
     Active Substance: TOFACITINIB CITRATE
     Dosage: 5 MG, 2X/DAY
     Route: 048
     Dates: start: 20170320, end: 20170402

REACTIONS (12)
  - Drug dose omission [Unknown]
  - Feeling abnormal [Recovering/Resolving]
  - Pain [Recovering/Resolving]
  - Condition aggravated [Recovering/Resolving]
  - Headache [Recovering/Resolving]
  - Intentional product misuse [Unknown]
  - Fatigue [Recovering/Resolving]
  - Mobility decreased [Recovering/Resolving]
  - Dizziness [Recovering/Resolving]
  - Musculoskeletal stiffness [Recovering/Resolving]
  - Drug ineffective [Recovering/Resolving]
  - Chills [Recovering/Resolving]

NARRATIVE: CASE EVENT DATE: 201703
